FAERS Safety Report 21207302 (Version 1)
Quarter: 2022Q3

REPORT INFORMATION
  Report Type: Spontaneous
  Country: FR (occurrence: FR)
  Receive Date: 20220812
  Receipt Date: 20220812
  Transmission Date: 20221027
  Serious: Yes (Hospitalization)
  Sender: FDA-Public Use
  Company Number: None

PATIENT
  Age: 62 Year
  Sex: Male
  Weight: 79 kg

DRUGS (5)
  1. ESOMEPRAZOLE [Suspect]
     Active Substance: ESOMEPRAZOLE
     Indication: Lower respiratory tract infection
     Dosage: UNIT DOSE :2 DF  , FREQUENCY TIME : 1 DAY  , DURATION : 7 DAY
     Dates: start: 20220120, end: 20220127
  2. CLARITHROMYCIN [Suspect]
     Active Substance: CLARITHROMYCIN
     Indication: Lower respiratory tract infection
     Dosage: UNIT DOSE : 1000 MG , FREQUENCY TIME : 1 DAY  , DURATION : 7 DAY
     Dates: start: 20220119, end: 20220126
  3. PREDNISOLONE SODIUM METAZOATE [Suspect]
     Active Substance: PREDNISOLONE SODIUM METAZOATE
     Indication: Lower respiratory tract infection
     Dosage: FORM STRENGTH : 20 MG, UNIT DOSE : 20 MG  , FREQUENCY TIME : 1 DAY  , DURATION : 5 DAY
     Dates: start: 20220119, end: 20220124
  4. CODEINE\SISYMBRIUM OFFICINALE WHOLE [Suspect]
     Active Substance: CODEINE\SISYMBRIUM OFFICINALE WHOLE
     Indication: Lower respiratory tract infection
     Dosage: ADULTS, SYRUP ,UNIT DOSE : 2 DF , FREQUENCY TIME : 1 DAY  , DURATION : 8 DAY
     Dates: start: 20220119, end: 20220127
  5. ESCARGOT [Suspect]
     Active Substance: ESCARGOT
     Indication: Cough
     Dosage: 10 PERCENT SUGAR FREE, SYRUP SWEETENED WITH SODIUM SACCHARIN AND LIQUID MALTITOL ,UNIT DOSE : 3 DF ,
     Dates: start: 20220120, end: 20220127

REACTIONS (1)
  - Pancreatitis acute [Recovering/Resolving]

NARRATIVE: CASE EVENT DATE: 20220127
